FAERS Safety Report 9688856 (Version 1)
Quarter: 2013Q4

REPORT INFORMATION
  Report Type: Spontaneous
  Country: US (occurrence: US)
  Receive Date: 20131114
  Receipt Date: 20131114
  Transmission Date: 20140711
  Serious: Yes (Other)
  Sender: FDA-Public Use
  Company Number: US-AMGEN-USASP2013079212

PATIENT
  Age: 78 Year
  Sex: Male

DRUGS (2)
  1. PROLIA [Suspect]
     Indication: HYPERCALCAEMIA
     Dosage: 60 MG, UNK
     Route: 058
  2. CINACALCET HCL [Suspect]
     Indication: PRODUCT USED FOR UNKNOWN INDICATION
     Route: 065

REACTIONS (4)
  - Hypophosphataemia [Unknown]
  - Hypocalcaemia [Recovering/Resolving]
  - Calcium ionised abnormal [Unknown]
  - Drug intolerance [Unknown]
